FAERS Safety Report 8095747-2 (Version None)
Quarter: 2012Q1

REPORT INFORMATION
  Report Type: 
  Country: None (occurrence: None)
  Receive Date: 20120131
  Receipt Date: 20120118
  Transmission Date: 20120608
  Serious: Yes (Hospitalization, Other)
  Sender: FDA-Public Use
  Company Number: US-ELI_LILLY_AND_COMPANY-US201201005644

PATIENT
  Age: 64 Year
  Sex: Female

DRUGS (4)
  1. LANTUS [Concomitant]
  2. HUMALOG [Suspect]
     Indication: DIABETES MELLITUS
     Dosage: UNK
  3. FORTEO [Suspect]
     Dosage: 20 UG, UNK
  4. MORPHINE [Concomitant]

REACTIONS (5)
  - CONFUSIONAL STATE [None]
  - CHOLELITHIASIS [None]
  - MYOCARDIAL INFARCTION [None]
  - DRUG DISPENSING ERROR [None]
  - VISUAL IMPAIRMENT [None]
